FAERS Safety Report 19272330 (Version 1)
Quarter: 2021Q2

REPORT INFORMATION
  Report Type: Report from Study
  Country: CA (occurrence: CA)
  Receive Date: 20210519
  Receipt Date: 20210519
  Transmission Date: 20210717
  Serious: Yes (Other)
  Sender: FDA-Public Use
  Company Number: CA-BIOGEN-2021BI00997444

PATIENT
  Sex: Female

DRUGS (2)
  1. TYSABRI [Suspect]
     Active Substance: NATALIZUMAB
     Route: 042
     Dates: start: 20160104
  2. TYSABRI [Suspect]
     Active Substance: NATALIZUMAB
     Indication: MULTIPLE SCLEROSIS
     Route: 042
     Dates: start: 20160104

REACTIONS (11)
  - Dysuria [Unknown]
  - Bladder discomfort [Not Recovered/Not Resolved]
  - Memory impairment [Unknown]
  - Vulvovaginal pain [Recovered/Resolved]
  - Micturition urgency [Unknown]
  - Urinary tract infection [Unknown]
  - Urinary retention [Unknown]
  - Diabetes mellitus [Unknown]
  - Off label use [Unknown]
  - Vulvovaginal discomfort [Unknown]
  - Hypertonic bladder [Unknown]
